FAERS Safety Report 7019880-9 (Version None)
Quarter: 2010Q3

REPORT INFORMATION
  Report Type: 
  Country: None (occurrence: None)
  Receive Date: 20100929
  Receipt Date: 20100706
  Transmission Date: 20110219
  Serious: Yes (Hospitalization)
  Sender: FDA-Public Use
  Company Number: US-BAYER-201025793NA

PATIENT
  Age: 45 Year
  Sex: Female
  Weight: 82 kg

DRUGS (6)
  1. YASMIN [Suspect]
     Indication: ORAL CONTRACEPTION
     Route: 048
     Dates: start: 20060605, end: 20070401
  2. HYDROCHLOROTHIAZIDE [Concomitant]
     Dosage: UNIT DOSE: 6.25 MG
  3. XANAX [Concomitant]
     Dosage: DAILY
  4. ACETAMINOPHEN [Concomitant]
  5. ALPRAZOLAM [Concomitant]
  6. PERCOCET [Concomitant]

REACTIONS (6)
  - DYSPNOEA [None]
  - HEART RATE INCREASED [None]
  - HYPERHIDROSIS [None]
  - PAIN IN EXTREMITY [None]
  - PULMONARY EMBOLISM [None]
  - RESPIRATORY RATE INCREASED [None]
